FAERS Safety Report 9466662 (Version 2)
Quarter: 2013Q4

REPORT INFORMATION
  Report Type: Spontaneous
  Country: IT (occurrence: IT)
  Receive Date: 20130820
  Receipt Date: 20131008
  Transmission Date: 20140711
  Serious: Yes (Hospitalization)
  Sender: FDA-Public Use
  Company Number: IT-BRISTOL-MYERS SQUIBB COMPANY-19192434

PATIENT
  Age: 89 Year
  Sex: Female

DRUGS (2)
  1. COUMADIN TABS 5 MG [Suspect]
     Route: 048
  2. FUROSEMIDE [Concomitant]
     Indication: HYPERTENSION
     Route: 048

REACTIONS (2)
  - Skull fractured base [Not Recovered/Not Resolved]
  - Cerebral haematoma [Not Recovered/Not Resolved]
